FAERS Safety Report 6509835-2 (Version None)
Quarter: 2009Q4

REPORT INFORMATION
  Report Type: 
  Country: None (occurrence: None)
  Receive Date: 20091221
  Receipt Date: 20091221
  Transmission Date: 20100525
  Serious: Yes (Other)
  Sender: FDA-Public Use
  Company Number: None

PATIENT
  Sex: Female
  Weight: 49.2153 kg

DRUGS (2)
  1. DEPAKOTE [Suspect]
     Indication: CONVULSION
     Dosage: SEE COPIES
     Dates: start: 20090811, end: 20091119
  2. LAMICTAL [Suspect]

REACTIONS (3)
  - CONDITION AGGRAVATED [None]
  - CONVULSION [None]
  - PRODUCT SUBSTITUTION ISSUE [None]
